FAERS Safety Report 9081676 (Version 1)
Quarter: 2013Q1

REPORT INFORMATION
  Report Type: Spontaneous
  Country: US (occurrence: US)
  Receive Date: 20130130
  Receipt Date: 20130130
  Transmission Date: 20140127
  Serious: No
  Sender: FDA-Public Use
  Company Number: US-ABBOTT-12P-163-0962764-00

PATIENT
  Sex: Male

DRUGS (3)
  1. HUMIRA 40 MG/0.8 ML PEN [Suspect]
     Indication: PSORIATIC ARTHROPATHY
     Route: 058
     Dates: start: 2007, end: 2010
  2. HUMIRA 40 MG/0.8 ML PEN [Suspect]
     Route: 058
     Dates: start: 2010
  3. LEFLUNOMIDE [Concomitant]
     Indication: PSORIATIC ARTHROPATHY

REACTIONS (3)
  - Feeling abnormal [Recovered/Resolved]
  - Infection [Recovered/Resolved]
  - Arthralgia [Recovering/Resolving]
